FAERS Safety Report 7060258-X (Version None)
Quarter: 2010Q4

REPORT INFORMATION
  Report Type: 
  Country: None (occurrence: None)
  Receive Date: 20101025
  Receipt Date: 20101021
  Transmission Date: 20110411
  Serious: Yes (Hospitalization)
  Sender: FDA-Public Use
  Company Number: US-BRISTOL-MYERS SQUIBB COMPANY-15273303

PATIENT
  Age: 56 Year
  Sex: Female

DRUGS (15)
  1. DASATINIB [Suspect]
     Indication: CHRONIC MYELOID LEUKAEMIA
     Dosage: INTERRUPTED SEP10
     Route: 048
     Dates: start: 20060606
  2. TRILEPTAL [Suspect]
     Indication: BIPOLAR DISORDER
     Dosage: WAS AT 300MG/DAY UP TO 25AUG10.
     Dates: start: 20080109
  3. SEROQUEL [Suspect]
     Indication: BIPOLAR DISORDER
     Dosage: AT BED TIME
     Dates: start: 20040317
  4. TOPAMAX [Suspect]
     Dates: start: 20030206
  5. KLONOPIN [Suspect]
     Dosage: THREE AT BEDTIME.
     Dates: start: 20090630
  6. LYRICA [Suspect]
     Dates: start: 20070221
  7. CELEBREX [Concomitant]
     Dates: start: 20030206
  8. EPIPEN [Concomitant]
     Dates: start: 20030401
  9. FIORICET [Concomitant]
     Indication: HEADACHE
     Dosage: ONE TABLET
     Dates: start: 20031003
  10. FLONASE [Concomitant]
     Dosage: NASAL SPRAY.
     Dates: start: 20080409
  11. LIDODERM [Concomitant]
     Dates: start: 20070725
  12. MIRALAX [Concomitant]
     Dates: start: 20050630
  13. MORPHINE [Concomitant]
     Dosage: IMMEDIATE RELEASE,AS NEEDED.
     Route: 048
     Dates: start: 20070124
  14. MS CONTIN [Concomitant]
     Dates: start: 20040521
  15. VENTOLIN DS [Concomitant]
     Dates: start: 20051019

REACTIONS (2)
  - HYPONATRAEMIA [None]
  - HYPOTENSION [None]
